FAERS Safety Report 7530026-0 (Version None)
Quarter: 2011Q2

REPORT INFORMATION
  Report Type: 
  Country: None (occurrence: None)
  Receive Date: 20110607
  Receipt Date: 20110525
  Transmission Date: 20111010
  Serious: Yes (Other)
  Sender: FDA-Public Use
  Company Number: PHHY2011US46064

PATIENT
  Sex: Female

DRUGS (2)
  1. PREDNISONE [Concomitant]
  2. EXJADE [Suspect]
     Dosage: 500 MG, BID
     Route: 048

REACTIONS (5)
  - DIABETES MELLITUS [None]
  - DIARRHOEA [None]
  - VISION BLURRED [None]
  - HAEMOGLOBIN DECREASED [None]
  - RETCHING [None]
